FAERS Safety Report 7962215 (Version 2)
Quarter: 2015Q1

REPORT INFORMATION
  Report Type: Spontaneous
  Country: SE (occurrence: None)
  Receive Date: 20110511
  Receipt Date: 20150219
  Transmission Date: 20150721
  Serious: Yes (Hospitalization, Other)
  Sender: FDA-Public Use
  Company Number: CIP11001124

PATIENT
  Sex: Female

DRUGS (2)
  1. RISEDRONATE SODIUM. [Suspect]
     Active Substance: RISEDRONATE SODIUM
     Dosage: ORAL
     Route: 048
  2. GLUCOCORTICODIDS [Concomitant]

REACTIONS (1)
  - Femur fracture [None]
